FAERS Safety Report 10881989 (Version 2)
Quarter: 2015Q1

REPORT INFORMATION
  Report Type: Spontaneous
  Country: US (occurrence: US)
  Receive Date: 20150303
  Receipt Date: 20150304
  Transmission Date: 20150721
  Serious: Yes (Hospitalization)
  Sender: FDA-Public Use
  Company Number: US-JAZZ-2015-US-003040

PATIENT
  Age: 74 Year
  Sex: Female

DRUGS (4)
  1. PRIALT [Suspect]
     Active Substance: ZICONOTIDE ACETATE
     Indication: BACK PAIN
     Dosage: UNK ?G, QH
     Route: 037
     Dates: start: 20091002
  2. PRIALT [Suspect]
     Active Substance: ZICONOTIDE ACETATE
     Dosage: 0.833 ?G, QH
     Route: 037
     Dates: start: 20150128, end: 201502
  3. PRIALT [Suspect]
     Active Substance: ZICONOTIDE ACETATE
     Dosage: MINIMUM RATE ?G, QH
     Route: 037
     Dates: start: 201502
  4. PRIALT [Suspect]
     Active Substance: ZICONOTIDE ACETATE
     Indication: PAIN
     Dosage: 0.958 ?G, QH
     Route: 037
     Dates: end: 20150128

REACTIONS (7)
  - Fall [Unknown]
  - Pneumonia [Recovered/Resolved]
  - Cardiac failure congestive [Recovered/Resolved]
  - Urosepsis [Not Recovered/Not Resolved]
  - Dementia [Not Recovered/Not Resolved]
  - Skin discolouration [Unknown]
  - Aggression [Not Recovered/Not Resolved]

NARRATIVE: CASE EVENT DATE: 201411
